FAERS Safety Report 8261364-4 (Version None)
Quarter: 2012Q2

REPORT INFORMATION
  Report Type: 
  Country: None (occurrence: None)
  Receive Date: 20120405
  Receipt Date: 20120322
  Transmission Date: 20120825
  Serious: Yes (Death, Hospitalization, Other)
  Sender: FDA-Public Use
  Company Number: JP-PFIZER INC-2011314731

PATIENT
  Age: 81 Year
  Sex: Female

DRUGS (7)
  1. GASTROM [Concomitant]
     Dosage: UNK
     Route: 048
     Dates: end: 20111129
  2. CELESTAMINE TAB [Suspect]
     Indication: ERYTHEMA
     Dosage: 2 DF, 1X/DAY
     Route: 048
     Dates: start: 20111114, end: 20111120
  3. LANSOPRAZOLE [Concomitant]
     Dosage: UNK
     Dates: end: 20111129
  4. ATARAX [Suspect]
     Indication: ERYTHEMA
     Dosage: 25 MG, 1X/DAY
     Route: 048
     Dates: start: 20111121, end: 20111127
  5. OLOPATADINE HCL [Suspect]
     Indication: ERYTHEMA
     Dosage: 5 MG, 1X/DAY
     Route: 048
     Dates: start: 20111128, end: 20111129
  6. XYZAL [Suspect]
     Indication: ERYTHEMA
     Dosage: 5 MG, 1X/DAY
     Route: 048
     Dates: start: 20111110, end: 20111113
  7. BEZALIP [Concomitant]
     Route: 048

REACTIONS (35)
  - HEPATIC FAILURE [None]
  - HEPATITIS [None]
  - MALAISE [None]
  - BLOOD BILIRUBIN INCREASED [None]
  - BILIRUBIN CONJUGATED INCREASED [None]
  - SOMNOLENCE [None]
  - ASCITES [None]
  - DERMATITIS [None]
  - EPSTEIN-BARR VIRUS ANTIBODY POSITIVE [None]
  - OLIGURIA [None]
  - PROTHROMBIN TIME PROLONGED [None]
  - ACTIVATED PARTIAL THROMBOPLASTIN TIME PROLONGED [None]
  - HEPATIC ENCEPHALOPATHY [None]
  - HEPATIC ATROPHY [None]
  - BLOOD CHOLINESTERASE DECREASED [None]
  - BLOOD IMMUNOGLOBULIN G INCREASED [None]
  - OEDEMA PERIPHERAL [None]
  - BLOOD IMMUNOGLOBULIN A INCREASED [None]
  - FAECES PALE [None]
  - DECREASED APPETITE [None]
  - PROTHROMBIN TIME RATIO DECREASED [None]
  - BLOOD ALBUMIN DECREASED [None]
  - ALANINE AMINOTRANSFERASE INCREASED [None]
  - BLOOD LACTATE DEHYDROGENASE INCREASED [None]
  - BLOOD ALKALINE PHOSPHATASE INCREASED [None]
  - GENERAL PHYSICAL HEALTH DETERIORATION [None]
  - LIVER DISORDER [None]
  - PROTEIN TOTAL DECREASED [None]
  - ASPARTATE AMINOTRANSFERASE INCREASED [None]
  - GAMMA-GLUTAMYLTRANSFERASE INCREASED [None]
  - ALBUMIN GLOBULIN RATIO ABNORMAL [None]
  - CHROMATURIA [None]
  - AUTOIMMUNE HEPATITIS [None]
  - JAUNDICE [None]
  - BLOOD FIBRINOGEN DECREASED [None]
